FAERS Safety Report 25342198 (Version 1)
Quarter: 2025Q2

REPORT INFORMATION
  Report Type: Spontaneous
  Country: US (occurrence: US)
  Receive Date: 20250521
  Receipt Date: 20250521
  Transmission Date: 20250716
  Serious: Yes (Other)
  Sender: DR REDDYS
  Company Number: US-DRL-USA-USA/2025/05/007179

PATIENT
  Age: 58 Year
  Sex: Female

DRUGS (21)
  1. PANTOPRAZOLE [Suspect]
     Active Substance: PANTOPRAZOLE
     Indication: Hereditary ataxia
  2. MECLIZINE [Concomitant]
     Active Substance: MECLIZINE HYDROCHLORIDE
     Indication: Vertigo
  3. fampridine [4-aminopyridine] [Concomitant]
     Indication: Balance disorder
  4. ACETAZOLAMIDE [Concomitant]
     Active Substance: ACETAZOLAMIDE
     Indication: Diplopia
  5. botulinum-toxin-A [Concomitant]
     Indication: Arthralgia
  6. RILUZOLE [Concomitant]
     Active Substance: RILUZOLE
     Indication: Hereditary ataxia
  7. AMANTADINE [Concomitant]
     Active Substance: AMANTADINE
     Indication: Hereditary ataxia
  8. GABAPENTIN [Concomitant]
     Active Substance: GABAPENTIN
     Indication: Hereditary ataxia
  9. MIRTAZAPINE [Concomitant]
     Active Substance: MIRTAZAPINE
     Indication: Hereditary ataxia
  10. ACETYLLEUCINE [Concomitant]
     Active Substance: ACETYLLEUCINE
     Indication: Hereditary ataxia
  11. CARBIDOPA\LEVODOPA [Concomitant]
     Active Substance: CARBIDOPA\LEVODOPA
     Indication: Hereditary ataxia
  12. MODAFINIL [Concomitant]
     Active Substance: MODAFINIL
     Indication: Hereditary ataxia
  13. amfetamine/dexamfetamine [dextroamphetamine/amphetamine] [Concomitant]
     Indication: Hereditary ataxia
  14. ubidecarenone [coenzyme Q10] [Concomitant]
     Indication: Hereditary ataxia
  15. immuneglobulin [IVIG] [Concomitant]
     Indication: Hereditary ataxia
  16. VORTIOXETINE [Concomitant]
     Active Substance: VORTIOXETINE
     Indication: Hereditary ataxia
  17. ROSUVASTATIN [Concomitant]
     Active Substance: ROSUVASTATIN
     Indication: Hereditary ataxia
  18. ESTROGENS\PROGESTERONE [Concomitant]
     Active Substance: ESTROGENS\PROGESTERONE
     Indication: Hereditary ataxia
  19. ONDANSETRON [Concomitant]
     Active Substance: ONDANSETRON
     Indication: Hereditary ataxia
  20. BACLOFEN [Concomitant]
     Active Substance: BACLOFEN
     Indication: Balance disorder
  21. TRORILUZOLE [Concomitant]
     Active Substance: TRORILUZOLE
     Indication: Hereditary ataxia
     Dosage: ON COMPASSIONATE BASIS (OFF-LABEL USE)
     Dates: start: 201805

REACTIONS (1)
  - Drug ineffective for unapproved indication [Unknown]
